FAERS Safety Report 7804170-4 (Version None)
Quarter: 2011Q4

REPORT INFORMATION
  Report Type: 
  Country: None (occurrence: None)
  Receive Date: 20111010
  Receipt Date: 20110930
  Transmission Date: 20120403
  Serious: Yes (Hospitalization)
  Sender: FDA-Public Use
  Company Number: US-SHIRE-ALL1-2011-02571

PATIENT
  Sex: Male
  Weight: 27.664 kg

DRUGS (2)
  1. ADDERALL XR 10 [Suspect]
     Indication: ATTENTION DEFICIT/HYPERACTIVITY DISORDER
     Dosage: 5 MG, 1X/DAY:QD
     Route: 048
     Dates: start: 20100830
  2. CLARITIN                           /00917501/ [Concomitant]
     Indication: SEASONAL ALLERGY
     Dosage: UNK UNK, 1X/DAY:QD
     Route: 048

REACTIONS (2)
  - IDIOPATHIC THROMBOCYTOPENIC PURPURA [None]
  - CONTUSION [None]
